FAERS Safety Report 8246750-0 (Version None)
Quarter: 2012Q1

REPORT INFORMATION
  Report Type: 
  Country: None (occurrence: None)
  Receive Date: 20120330
  Receipt Date: 20120323
  Transmission Date: 20120608
  Serious: Yes (Hospitalization, Other)
  Sender: FDA-Public Use
  Company Number: US-PFIZER INC-2012041053

PATIENT
  Sex: Female
  Weight: 102.4 kg

DRUGS (1)
  1. DILANTIN [Suspect]
     Indication: CONVULSION
     Dosage: 300 MG, DAILY
     Route: 048
     Dates: start: 20010201, end: 20120215

REACTIONS (7)
  - ASTHENIA [None]
  - NAUSEA [None]
  - BLOOD GLUCOSE INCREASED [None]
  - DYSPNOEA [None]
  - BLOOD PRESSURE INCREASED [None]
  - HYPERHIDROSIS [None]
  - ABDOMINAL DISCOMFORT [None]
